FAERS Safety Report 4712621-7 (Version None)
Quarter: 2005Q3

REPORT INFORMATION
  Report Type: 
  Country: None (occurrence: None)
  Receive Date: 20050711
  Receipt Date: 20050629
  Transmission Date: 20060218
  Serious: Yes (Disabling, Other)
  Sender: FDA-Public Use
  Company Number: 2005095695

PATIENT
  Age: 56 Year
  Sex: Female
  Weight: 72.5755 kg

DRUGS (1)
  1. DEPO-PROVERA [Suspect]
     Indication: ENDOMETRIOSIS

REACTIONS (16)
  - AMENORRHOEA [None]
  - CHOKING [None]
  - DRUG INEFFECTIVE [None]
  - FACIAL PALSY [None]
  - HEADACHE [None]
  - HORMONE LEVEL ABNORMAL [None]
  - HYPERSOMNIA [None]
  - MENINGIOMA [None]
  - NERVE INJURY [None]
  - ORAL INTAKE REDUCED [None]
  - PAIN [None]
  - PARALYSIS [None]
  - PERFORMANCE STATUS DECREASED [None]
  - POST PROCEDURAL COMPLICATION [None]
  - THERAPEUTIC RESPONSE UNEXPECTED WITH DRUG SUBSTITUTION [None]
  - TRIGEMINAL NEURALGIA [None]
